FAERS Safety Report 4956744-6 (Version None)
Quarter: 2006Q1

REPORT INFORMATION
  Report Type: 
  Country: None (occurrence: None)
  Receive Date: 20060329
  Receipt Date: 20060303
  Transmission Date: 20060701
  Serious: Yes (Other)
  Sender: FDA-Public Use
  Company Number: GB-ROCHE-439304

PATIENT
  Age: 19 Year
  Sex: Female
  Weight: 62.6 kg

DRUGS (4)
  1. ROACCUTANE [Suspect]
     Indication: ACNE
     Dosage: COURSE THREE.
     Route: 048
     Dates: start: 20050715, end: 20051223
  2. ROACCUTANE [Suspect]
     Dosage: COURSE ONE.
     Route: 048
  3. ROACCUTANE [Suspect]
     Dosage: COURSE TWO.
     Route: 048
  4. DIANETTE [Concomitant]
     Route: 048

REACTIONS (3)
  - DRUG EXPOSURE DURING PREGNANCY [None]
  - NO ADVERSE EFFECT [None]
  - PREGNANCY [None]
